FAERS Safety Report 12805389 (Version 1)
Quarter: 2016Q4

REPORT INFORMATION
  Report Type: Spontaneous
  Country: US (occurrence: US)
  Receive Date: 20161004
  Receipt Date: 20161004
  Transmission Date: 20170207
  Serious: Yes (Other)
  Sender: FDA-Public Use
  Company Number: US-ACCORD-044494

PATIENT
  Age: 16 Year
  Sex: Female

DRUGS (4)
  1. GEMCITABINE/GEMCITABINE HYDROCHLORIDE [Suspect]
     Active Substance: GEMCITABINE\GEMCITABINE HYDROCHLORIDE
     Indication: NASOPHARYNGEAL CANCER STAGE III
  2. CISPLATIN. [Suspect]
     Active Substance: CISPLATIN
     Indication: NASOPHARYNGEAL CANCER STAGE II
  3. FLUOROURACIL. [Suspect]
     Active Substance: FLUOROURACIL
     Indication: NASOPHARYNGEAL CANCER STAGE III
  4. OXALIPLATIN. [Suspect]
     Active Substance: OXALIPLATIN
     Indication: NASOPHARYNGEAL CANCER STAGE III

REACTIONS (6)
  - Myositis [None]
  - Metastases to spine [None]
  - Recall phenomenon [Recovered/Resolved]
  - Off label use [Unknown]
  - Malignant neoplasm progression [None]
  - Disease progression [Unknown]
